FAERS Safety Report 24139997 (Version 2)
Quarter: 2024Q3

REPORT INFORMATION
  Report Type: Spontaneous
  Country: US (occurrence: US)
  Receive Date: 20240726
  Receipt Date: 20240822
  Transmission Date: 20241016
  Serious: No
  Sender: VIIV
  Company Number: US-VIIV HEALTHCARE LIMITED-US2024089992

PATIENT
  Age: 39 Year
  Sex: Female
  Weight: 108.9 kg

DRUGS (1)
  1. JULUCA [Suspect]
     Active Substance: DOLUTEGRAVIR SODIUM\RILPIVIRINE HYDROCHLORIDE
     Indication: HIV infection
     Dosage: 1 DF, QD
     Route: 048
     Dates: start: 20220101

REACTIONS (1)
  - Product dose omission issue [Not Recovered/Not Resolved]

NARRATIVE: CASE EVENT DATE: 20240714
